FAERS Safety Report 7399960-9 (Version None)
Quarter: 2011Q2

REPORT INFORMATION
  Report Type: 
  Country: None (occurrence: None)
  Receive Date: 20110407
  Receipt Date: 20110325
  Transmission Date: 20111010
  Serious: Yes (Hospitalization, Disabling)
  Sender: FDA-Public Use
  Company Number: FR-JNJFOC-20110305546

PATIENT
  Sex: Male

DRUGS (7)
  1. ABILIFY [Suspect]
     Route: 048
  2. PARKINANE LP [Concomitant]
     Route: 065
  3. INIPOMP [Concomitant]
     Route: 065
  4. HALDOL [Suspect]
     Indication: PSYCHOTIC DISORDER
     Route: 030
  5. BROMAZEPAM [Concomitant]
     Route: 065
  6. ATARAX [Concomitant]
     Route: 065
  7. ABILIFY [Suspect]
     Indication: PSYCHOTIC DISORDER
     Route: 048

REACTIONS (2)
  - BRIEF PSYCHOTIC DISORDER WITH MARKED STRESSORS [None]
  - TREMOR [None]
